FAERS Safety Report 17489805 (Version 1)
Quarter: 2020Q1

REPORT INFORMATION
  Report Type: Spontaneous
  Country: US (occurrence: US)
  Receive Date: 20200303
  Receipt Date: 20200303
  Transmission Date: 20200409
  Serious: No
  Sender: FDA-Public Use
  Company Number: US-AKORN PHARMACEUTICALS-2019AKN02241

PATIENT
  Age: 19 Year
  Sex: Female

DRUGS (4)
  1. CLINDAMYCIN PHOSPHATE. [Concomitant]
     Active Substance: CLINDAMYCIN PHOSPHATE
     Route: 061
  2. NEXPLANON [Concomitant]
     Active Substance: ETONOGESTREL
     Route: 059
  3. MYORISAN [Suspect]
     Active Substance: ISOTRETINOIN
     Indication: ACNE
     Dosage: 40 MG, 1X/DAY
     Route: 048
     Dates: start: 20180404, end: 20180420
  4. TRETINOIN. [Concomitant]
     Active Substance: TRETINOIN
     Dosage: DAILY AT BEDTIME
     Route: 061

REACTIONS (3)
  - Visual impairment [Recovered/Resolved]
  - Off label use [Recovered/Resolved]
  - Headache [Recovered/Resolved]

NARRATIVE: CASE EVENT DATE: 201804
